APPROVED DRUG PRODUCT: TOLTERODINE TARTRATE
Active Ingredient: TOLTERODINE TARTRATE
Strength: 2MG
Dosage Form/Route: TABLET;ORAL
Application: A202641 | Product #002
Applicant: PHARMOBEDIENT CONSULTING LLC
Approved: Nov 27, 2012 | RLD: No | RS: No | Type: DISCN